FAERS Safety Report 22211897 (Version 2)
Quarter: 2024Q3

REPORT INFORMATION
  Report Type: Report from Study
  Country: US (occurrence: US)
  Receive Date: 20230414
  Receipt Date: 20240812
  Transmission Date: 20241017
  Serious: Yes (Other)
  Sender: NOVARTIS
  Company Number: US-002147023-NVSC2023US083059

PATIENT
  Sex: Male

DRUGS (1)
  1. ENTRESTO [Suspect]
     Active Substance: SACUBITRIL\VALSARTAN
     Indication: Product used for unknown indication
     Dosage: UNK (STARTED TAKING ENTRESTO ABOUT 1 MONTH AGO)
     Route: 048
     Dates: start: 202303

REACTIONS (10)
  - Cardiac dysfunction [Unknown]
  - Chest pain [Unknown]
  - Abdominal distension [Unknown]
  - Peripheral swelling [Unknown]
  - Swelling face [Unknown]
  - Dyspnoea [Unknown]
  - Gait disturbance [Unknown]
  - Pulmonary oedema [Unknown]
  - Asthenia [Unknown]
  - Illness [Unknown]
